FAERS Safety Report 11801341 (Version 1)
Quarter: 2015Q4

REPORT INFORMATION
  Report Type: Report from Study
  Country: US (occurrence: US)
  Receive Date: 20151204
  Receipt Date: 20151204
  Transmission Date: 20160305
  Serious: Yes (Other)
  Sender: FDA-Public Use
  Company Number: US-AMGEN-USASP2015128108

PATIENT
  Age: 54 Year
  Sex: Female

DRUGS (1)
  1. ENBREL [Suspect]
     Active Substance: ETANERCEPT
     Indication: ANKYLOSING SPONDYLITIS
     Dosage: UNK UNK, UNK
     Route: 065
     Dates: start: 2002

REACTIONS (5)
  - Malaise [Recovering/Resolving]
  - Upper respiratory tract congestion [Recovering/Resolving]
  - Spinal disorder [Unknown]
  - Cough [Recovering/Resolving]
  - Pyrexia [Recovering/Resolving]
